FAERS Safety Report 22966403 (Version 2)
Quarter: 2023Q4

REPORT INFORMATION
  Report Type: Report from Study
  Country: FR (occurrence: FR)
  Receive Date: 20230921
  Receipt Date: 20231013
  Transmission Date: 20240109
  Serious: Yes (Other)
  Sender: FDA-Public Use
  Company Number: FR-SA-SAC20230918000378

PATIENT
  Age: 64 Year
  Sex: Female
  Weight: 56 kg

DRUGS (9)
  1. ISATUXIMAB [Suspect]
     Active Substance: ISATUXIMAB
     Indication: Minimal residual disease
     Dosage: 10 MG/KG, QM
     Route: 042
     Dates: start: 20220615, end: 20220615
  2. CARFILZOMIB [Suspect]
     Active Substance: CARFILZOMIB
     Indication: Minimal residual disease
     Dosage: 56 MG/M2, D 1, 8, 15
     Route: 042
     Dates: start: 20220615, end: 20220615
  3. CARFILZOMIB [Suspect]
     Active Substance: CARFILZOMIB
     Dosage: 56 MG/M2, D 1, 8, 15
     Route: 042
     Dates: start: 20221123, end: 20221123
  4. LENALIDOMIDE [Suspect]
     Active Substance: LENALIDOMIDE
     Indication: Minimal residual disease
     Dosage: 25 MG, DAY 1-21
     Route: 048
     Dates: start: 20220615, end: 20220615
  5. LENALIDOMIDE [Suspect]
     Active Substance: LENALIDOMIDE
     Dosage: 25 MG, DAY 1-21
     Route: 048
     Dates: start: 20221129, end: 20221129
  6. DEXAMETHASONE [Suspect]
     Active Substance: DEXAMETHASONE
     Indication: Minimal residual disease
     Dosage: 40 MG, QW
     Route: 048
     Dates: start: 20220615, end: 20220615
  7. DEXAMETHASONE [Suspect]
     Active Substance: DEXAMETHASONE
     Dosage: 40 MG, QW
     Route: 048
     Dates: start: 20221130, end: 20221130
  8. IBERDOMIDE [Suspect]
     Active Substance: IBERDOMIDE
     Indication: Minimal residual disease
     Dosage: 1 MG, DAY 1-21
     Route: 048
     Dates: start: 20230523, end: 20230523
  9. IBERDOMIDE [Suspect]
     Active Substance: IBERDOMIDE
     Dosage: 0.75 MG

REACTIONS (1)
  - Neutropenia [Recovered/Resolved]

NARRATIVE: CASE EVENT DATE: 20230913
